FAERS Safety Report 9725998 (Version 2)
Quarter: 2013Q4

REPORT INFORMATION
  Report Type: Spontaneous
  Country: US (occurrence: US)
  Receive Date: 20131203
  Receipt Date: 20131203
  Transmission Date: 20140711
  Serious: Yes (Hospitalization)
  Sender: FDA-Public Use
  Company Number: US-009507513-2011SP040933

PATIENT
  Sex: Female
  Weight: 89.81 kg

DRUGS (4)
  1. NUVARING [Suspect]
     Indication: CONTRACEPTION
     Dosage: UNK
     Route: 067
     Dates: start: 20081013, end: 20090908
  2. NUVARING [Suspect]
     Dates: start: 200901, end: 200908
  3. NUVARING [Suspect]
     Dates: start: 200908
  4. DIOVAN [Concomitant]
     Dates: start: 2004

REACTIONS (3)
  - Cerebral venous thrombosis [Unknown]
  - Cervical radiculopathy [Unknown]
  - Hypertension [Unknown]
